FAERS Safety Report 23744471 (Version 1)
Quarter: 2024Q2

REPORT INFORMATION
  Report Type: Spontaneous
  Country: CA (occurrence: CA)
  Receive Date: 20240415
  Receipt Date: 20240415
  Transmission Date: 20240716
  Serious: Yes (Hospitalization)
  Sender: FDA-Public Use
  Company Number: CA-TEVA-VS-3181771

PATIENT
  Age: 64 Year
  Sex: Male
  Weight: 73 kg

DRUGS (9)
  1. PEMETREXED DISODIUM [Suspect]
     Active Substance: PEMETREXED DISODIUM
     Indication: Pleural disorder
     Dosage: DESCRIPTION: PEMETREXED DISODIUM FOR INJECTION, DOSE FORM: POWDER FOR SOLUTION INTRAVENOUS.
     Route: 041
  2. DULOXETINE [Concomitant]
     Active Substance: DULOXETINE
     Dosage: DESCRIPTION: DULOXETINE /01749302/, DOSE FORM: CAPSULE, DELAYED RELEASE
     Route: 048
  3. FOLIC ACID [Concomitant]
     Active Substance: FOLIC ACID
     Route: 065
  4. LEVOFLOXACIN [Concomitant]
     Active Substance: LEVOFLOXACIN
     Route: 065
  5. METFORMIN [Concomitant]
     Active Substance: METFORMIN HYDROCHLORIDE
     Route: 065
  6. OLANZAPINE [Concomitant]
     Active Substance: OLANZAPINE
     Route: 065
  7. VITAMIN B12 [Concomitant]
     Active Substance: CYANOCOBALAMIN
     Route: 065
  8. CARBOPLATIN [Suspect]
     Active Substance: CARBOPLATIN
     Indication: Pleural disorder
     Dosage: DOSE FORM: SOLUTION INTRAVENOUS
     Route: 041
  9. APIXABAN [Concomitant]
     Active Substance: APIXABAN
     Route: 065

REACTIONS (2)
  - Neutrophil count decreased [Recovered/Resolved]
  - Pyrexia [Recovered/Resolved]
